FAERS Safety Report 5788692-6 (Version None)
Quarter: 2008Q2

REPORT INFORMATION
  Report Type: 
  Country: None (occurrence: None)
  Receive Date: 20080626
  Receipt Date: 20080619
  Transmission Date: 20081010
  Serious: Yes (Hospitalization)
  Sender: FDA-Public Use
  Company Number: US-AMGEN-US288377

PATIENT
  Sex: Female

DRUGS (7)
  1. ENBREL [Suspect]
     Indication: RHEUMATOID ARTHRITIS
     Route: 058
     Dates: start: 20030101
  2. PREDNISONE [Concomitant]
     Dates: start: 20030401, end: 20040209
  3. VIOXX [Concomitant]
     Dates: start: 20010501, end: 20040901
  4. NEURONTIN [Concomitant]
     Dates: start: 20030127
  5. ZANAFLEX [Concomitant]
     Dates: start: 20030101
  6. SEROQUEL [Concomitant]
  7. METHOTREXATE [Concomitant]
     Dates: start: 20010501, end: 20030401

REACTIONS (2)
  - HYPOXIA [None]
  - INTERSTITIAL LUNG DISEASE [None]
